FAERS Safety Report 23097924 (Version 1)
Quarter: 2023Q4

REPORT INFORMATION
  Report Type: Spontaneous
  Country: US (occurrence: US)
  Receive Date: 20231023
  Receipt Date: 20231023
  Transmission Date: 20240110
  Serious: Yes (Death, Hospitalization, Other)
  Sender: FDA-Public Use
  Company Number: US-ALEMBIC PHARMACUETICALS LIMITED-2023SCAL000930

PATIENT

DRUGS (2)
  1. LAMOTRIGINE [Suspect]
     Active Substance: LAMOTRIGINE
     Indication: Seizure
     Dosage: UNK
     Route: 065
  2. VALPROIC ACID [Suspect]
     Active Substance: VALPROIC ACID
     Indication: Seizure
     Dosage: UNK
     Route: 065

REACTIONS (20)
  - Hyperammonaemic encephalopathy [Fatal]
  - Cardiac arrest [Fatal]
  - Anal incontinence [Fatal]
  - Urinary incontinence [Fatal]
  - Pulseless electrical activity [Fatal]
  - Unresponsive to stimuli [Fatal]
  - Mydriasis [Fatal]
  - Areflexia [Fatal]
  - Respiratory acidosis [Fatal]
  - Ammonia increased [Fatal]
  - Metabolic encephalopathy [Fatal]
  - Multiple organ dysfunction syndrome [Fatal]
  - Rhabdomyolysis [Fatal]
  - Ischaemic hepatitis [Fatal]
  - Acute myocardial infarction [Fatal]
  - Acute kidney injury [Fatal]
  - Disseminated intravascular coagulation [Fatal]
  - Hypoxic-ischaemic encephalopathy [Fatal]
  - Pupillary reflex impaired [Fatal]
  - Mental status changes [Fatal]
